FAERS Safety Report 11536189 (Version 1)
Quarter: 2015Q3

REPORT INFORMATION
  Report Type: Spontaneous
  Country: CA (occurrence: CA)
  Receive Date: 20150922
  Receipt Date: 20150922
  Transmission Date: 20151125
  Serious: Yes (Hospitalization, Other)
  Sender: FDA-Public Use
  Company Number: CA-GLAXOSMITHKLINE-CA2015GSK132435

PATIENT
  Age: 78 Year
  Sex: Male

DRUGS (9)
  1. FLUTICASONE PROPIONATE+SALMETEROL XINAFOATE [Suspect]
     Active Substance: FLUTICASONE PROPIONATE\SALMETEROL XINAFOATE
     Route: 055
  2. SPIRIVA [Suspect]
     Active Substance: TIOTROPIUM BROMIDE MONOHYDRATE
  3. CANADIAN SEASONAL INFLUENZA VACCINE UNSPECIFIED [Suspect]
     Active Substance: INFLUENZA VIRUS VACCINE
     Indication: PROPHYLAXIS
  4. AMLODIPINE BESILATE [Concomitant]
     Active Substance: AMLODIPINE BESYLATE
  5. MORNIFLUMATE [Concomitant]
     Active Substance: MORNIFLUMATE
  6. GLYBURIDE. [Concomitant]
     Active Substance: GLYBURIDE
  7. VENTOLIN [Suspect]
     Active Substance: ALBUTEROL SULFATE
  8. RAMIPRIL. [Concomitant]
     Active Substance: RAMIPRIL
  9. THEOPHYLLINE [Concomitant]
     Active Substance: THEOPHYLLINE ANHYDROUS

REACTIONS (15)
  - Asthenia [Unknown]
  - Chest pain [Unknown]
  - Diarrhoea [Unknown]
  - Urinary tract infection [Unknown]
  - Vertigo [Unknown]
  - Chronic obstructive pulmonary disease [Unknown]
  - Dehydration [Unknown]
  - Weight decreased [Unknown]
  - Muscle strain [Unknown]
  - Fall [Unknown]
  - Nasopharyngitis [Unknown]
  - Decreased appetite [Unknown]
  - Activities of daily living impaired [Unknown]
  - Dyspnoea exertional [Unknown]
  - Lower respiratory tract infection [Unknown]
